FAERS Safety Report 4699368-0 (Version None)
Quarter: 2005Q2

REPORT INFORMATION
  Report Type: 
  Country: None (occurrence: None)
  Receive Date: 20050622
  Receipt Date: 20050614
  Transmission Date: 20051028
  Serious: Yes (Hospitalization)
  Sender: FDA-Public Use
  Company Number: RS005116-F

PATIENT
  Age: 48 Year
  Sex: Male
  Weight: 73 kg

DRUGS (3)
  1. RABEPRAZOLE SODIUM [Suspect]
     Indication: GASTROOESOPHAGEAL REFLUX DISEASE
     Dosage: 10 MB 1 IN 1 D ORAL
     Route: 048
     Dates: start: 20040701, end: 20040909
  2. ZOLOFT [Concomitant]
  3. STRESAM        (ETIFOXINE) [Concomitant]

REACTIONS (7)
  - ECTHYMA [None]
  - EOSINOPHILIA [None]
  - ERYTHEMA MULTIFORME [None]
  - HAPTOGLOBIN INCREASED [None]
  - MITRAL VALVE INCOMPETENCE [None]
  - ORF [None]
  - TOXIC SKIN ERUPTION [None]
